FAERS Safety Report 15135631 (Version 2)
Quarter: 2018Q3

REPORT INFORMATION
  Report Type: Spontaneous
  Country: FR (occurrence: FR)
  Receive Date: 20180712
  Receipt Date: 20180906
  Transmission Date: 20181010
  Serious: Yes (Death)
  Sender: FDA-Public Use
  Company Number: FR-ASTRAZENECA-2018SE86991

PATIENT
  Age: 67 Year
  Sex: Female
  Weight: 58 kg

DRUGS (13)
  1. MOVICOL [Concomitant]
     Active Substance: POLYETHYLENE GLYCOL 3350\POTASSIUM CHLORIDE\SODIUM BICARBONATE\SODIUM CHLORIDE
  2. INNOHEP [Concomitant]
     Active Substance: TINZAPARIN SODIUM
  3. TAGRISSO [Suspect]
     Active Substance: OSIMERTINIB
     Indication: LUNG ADENOCARCINOMA
     Dosage: 80 MG THEN 160 IN OCTOBER 2017
     Route: 048
     Dates: start: 201601
  4. LASILIX [Concomitant]
     Active Substance: FUROSEMIDE
  5. ATARAX [Concomitant]
     Active Substance: HYDROXYZINE HYDROCHLORIDE
  6. INEXIUM [Concomitant]
     Active Substance: ESOMEPRAZOLE
  7. OXYCONTIN [Concomitant]
     Active Substance: OXYCODONE HYDROCHLORIDE
  8. VERAPAMIL [Concomitant]
     Active Substance: VERAPAMIL HYDROCHLORIDE
  9. BISOPROLOL HEMIFUMARATE [Concomitant]
     Active Substance: BISOPROLOL FUMARATE
  10. ALIMTA [Suspect]
     Active Substance: PEMETREXED DISODIUM
     Indication: LUNG ADENOCARCINOMA
     Dosage: 1 INJECTION EVERY 3 WEEKS
     Route: 042
     Dates: start: 201705
  11. OXYCODONE [Concomitant]
     Active Substance: OXYCODONE
  12. RIFAMYCINE CHIBRET [Concomitant]
     Active Substance: RIFAMYCIN
  13. DIFFU K [Concomitant]
     Active Substance: POTASSIUM CHLORIDE

REACTIONS (4)
  - Cardiac failure [Fatal]
  - Left ventricular failure [Fatal]
  - Left ventricular dysfunction [Fatal]
  - Mitral valve incompetence [Fatal]

NARRATIVE: CASE EVENT DATE: 201804
